FAERS Safety Report 18647811 (Version 1)
Quarter: 2020Q4

REPORT INFORMATION
  Report Type: Spontaneous
  Country: US (occurrence: US)
  Receive Date: 20201222
  Receipt Date: 20201222
  Transmission Date: 20210114
  Serious: Yes (Other)
  Sender: FDA-Public Use
  Company Number: US-SA-2020SA363641

PATIENT

DRUGS (1)
  1. DUPIXENT [Suspect]
     Active Substance: DUPILUMAB
     Indication: DERMATITIS
     Dosage: 300 MG, QOW
     Dates: start: 202010

REACTIONS (5)
  - Condition aggravated [Unknown]
  - Neuropathy peripheral [Unknown]
  - Pruritus [Unknown]
  - Paraesthesia [Unknown]
  - Back disorder [Unknown]

NARRATIVE: CASE EVENT DATE: 2020
